FAERS Safety Report 8791867 (Version 1)
Quarter: 2012Q4

REPORT INFORMATION
  Report Type: 
  Country: DE (occurrence: DE)
  Receive Date: 20120918
  Receipt Date: 20120918
  Transmission Date: 20130627
  Serious: Yes (Life-Threatening, Hospitalization, Other)
  Sender: FDA-Public Use
  Company Number: DE-BAYER-2012-077525

PATIENT
  Age: 85 Year
  Sex: Male
  Weight: 70 kg

DRUGS (6)
  1. ULTRAGRAF [Suspect]
     Indication: COMPUTERISED TOMOGRAM THORAX
     Dosage: 80 ml, ONCE
     Dates: start: 20120729, end: 20120729
  2. ULTRAGRAF [Suspect]
     Indication: COMPUTERISED TOMOGRAM ABDOMEN
     Dosage: 80 ml, ONCE
     Dates: start: 20120730, end: 20120730
  3. ULTRAGRAF [Suspect]
     Indication: ARTERIOGRAM CORONARY
     Dosage: 60 ml, ONCE
     Dates: start: 20120727, end: 20120727
  4. ACETYLSALICYLIC ACID (} 100 MG) [Concomitant]
     Indication: CORONARY ARTERIAL STENT INSERTION
     Dosage: 100 mg, UNK
  5. CLOPIDOGREL [Concomitant]
     Indication: CORONARY ARTERIAL STENT INSERTION
     Dosage: 75 mg, UNK
  6. HEPARIN [Concomitant]
     Indication: THROMBOSIS PROPHYLAXIS
     Dosage: 5000 iu, UNK

REACTIONS (14)
  - Renal failure [Recovered/Resolved]
  - Hepatic failure [Recovered/Resolved]
  - Transaminases increased [Recovered/Resolved]
  - Encephalopathy [None]
  - Delirium [None]
  - Cardiomyopathy [None]
  - Lobar pneumonia [None]
  - Pulmonary sepsis [None]
  - Systemic inflammatory response syndrome [Recovered/Resolved]
  - Lactic acidosis [None]
  - Cholecystitis [None]
  - Hydrocholecystis [None]
  - Abdominal pain upper [None]
  - Gastrointestinal ischaemia [None]
